FAERS Safety Report 15506197 (Version 1)
Quarter: 2018Q4

REPORT INFORMATION
  Report Type: Spontaneous
  Country: US (occurrence: US)
  Receive Date: 20181010
  Receipt Date: 20181010
  Transmission Date: 20190205
  Serious: Yes (Other)
  Sender: FDA-Public Use
  Company Number: None

PATIENT
  Age: 78 Year
  Sex: Male

DRUGS (1)
  1. OLMESARTAN [Suspect]
     Active Substance: OLMESARTAN
     Route: 048
     Dates: start: 201806

REACTIONS (5)
  - Headache [None]
  - Product substitution issue [None]
  - Deafness unilateral [None]
  - Swelling [None]
  - Product complaint [None]

NARRATIVE: CASE EVENT DATE: 201806
